FAERS Safety Report 5223022-X (Version None)
Quarter: 2007Q1

REPORT INFORMATION
  Report Type: 
  Country: None (occurrence: None)
  Receive Date: 20070124
  Receipt Date: 20070108
  Transmission Date: 20070707
  Serious: Yes (Hospitalization)
  Sender: FDA-Public Use
  Company Number: 2006002228

PATIENT
  Age: 56 Year
  Sex: Female

DRUGS (3)
  1. ERLOTINIB (TABLET) [Suspect]
     Indication: OVARIAN CANCER
     Dosage: 100 MG QD, ORAL
     Route: 048
     Dates: start: 20060922, end: 20061115
  2. PAROXETINE HCL [Concomitant]
  3. NOCTAMIDE (LORMETAZEPAM) [Concomitant]

REACTIONS (1)
  - SMALL INTESTINAL OBSTRUCTION [None]
